FAERS Safety Report 25274850 (Version 1)
Quarter: 2025Q2

REPORT INFORMATION
  Report Type: Spontaneous
  Country: US (occurrence: None)
  Receive Date: 20250506
  Receipt Date: 20250506
  Transmission Date: 20250717
  Serious: Yes (Disabling)
  Sender: FDA-CTU
  Company Number: None

PATIENT
  Age: 69 Year
  Sex: Male
  Weight: 103.5 kg

DRUGS (2)
  1. TIRZEPATIDE [Suspect]
     Active Substance: TIRZEPATIDE
     Indication: Weight decreased
     Route: 058
     Dates: start: 20250417, end: 20250501
  2. LISINOPRIL [Concomitant]
     Active Substance: LISINOPRIL

REACTIONS (8)
  - Decreased appetite [None]
  - Constipation [None]
  - Pain [None]
  - Impaired work ability [None]
  - Nausea [None]
  - Discomfort [None]
  - Diarrhoea [None]
  - Gastrointestinal pain [None]

NARRATIVE: CASE EVENT DATE: 20250501
